FAERS Safety Report 8493053-5 (Version None)
Quarter: 2012Q3

REPORT INFORMATION
  Report Type: 
  Country: None (occurrence: None)
  Receive Date: 20120706
  Receipt Date: 20111220
  Transmission Date: 20120928
  Serious: Yes (Congenital Anomaly)
  Sender: FDA-Public Use
  Company Number: US-ROCHE-GNE323173

PATIENT
  Sex: Male

DRUGS (2)
  1. OMALIZUMAB [Suspect]
     Indication: ASTHMA
     Dosage: LAST XOLAIR DOSE TAKEN BY MOTHER, PRIOR TO SAE: 27 APR 2011 AT A DOSE OF 300MG
     Route: 064
  2. PREVACID [Concomitant]
     Indication: GASTROOESOPHAGEAL REFLUX DISEASE

REACTIONS (7)
  - MATERNAL EXPOSURE TIMING UNSPECIFIED [None]
  - RESPIRATORY TRACT INFECTION VIRAL [None]
  - OTITIS MEDIA [None]
  - ACROCHORDON [None]
  - BRONCHIOLITIS [None]
  - EAR INFECTION [None]
  - VISUAL FIELD DEFECT [None]
